FAERS Safety Report 10039482 (Version 1)
Quarter: 2014Q1

REPORT INFORMATION
  Report Type: Spontaneous
  Country: GB (occurrence: GB)
  Receive Date: 20140326
  Receipt Date: 20140326
  Transmission Date: 20141002
  Serious: Yes (Other)
  Sender: FDA-Public Use
  Company Number: GB-JNJFOC-20140311732

PATIENT
  Age: 77 Year
  Sex: Male
  Weight: 83 kg

DRUGS (7)
  1. XARELTO [Suspect]
     Indication: EMBOLISM VENOUS
     Route: 048
     Dates: start: 20131111
  2. XARELTO [Suspect]
     Indication: EMBOLISM VENOUS
     Route: 048
     Dates: end: 20131220
  3. XARELTO [Suspect]
     Indication: PULMONARY EMBOLISM
     Route: 048
     Dates: end: 20131220
  4. XARELTO [Suspect]
     Indication: PULMONARY EMBOLISM
     Route: 048
     Dates: start: 20131111
  5. TAMSULOSIN [Concomitant]
     Route: 065
     Dates: start: 20081106
  6. AMITRIPTYLINE [Concomitant]
     Route: 065
     Dates: start: 20080723
  7. SIMVASTATIN [Concomitant]
     Route: 065
     Dates: start: 20081106

REACTIONS (5)
  - Infarction [Unknown]
  - Pain in extremity [Unknown]
  - Splinter haemorrhages [Unknown]
  - Thrombocytopenia [Recovering/Resolving]
  - Vasculitis [Recovering/Resolving]
